FAERS Safety Report 4688252-4 (Version None)
Quarter: 2005Q2

REPORT INFORMATION
  Report Type: 
  Country: None (occurrence: None)
  Receive Date: 20050610
  Receipt Date: 20050601
  Transmission Date: 20051028
  Serious: Yes (Hospitalization)
  Sender: FDA-Public Use
  Company Number: NL-MERCK-0506NLD00011

PATIENT
  Age: 9 Year
  Sex: Male

DRUGS (5)
  1. DECADRON [Suspect]
     Route: 065
  2. VINCRISTINE SULFATE [Concomitant]
     Route: 065
  3. DAUNORUBICIN [Concomitant]
     Route: 065
  4. AMPHOTERICIN B [Concomitant]
     Route: 065
  5. SULFAMETHOXAZOLE AND TRIMETHOPRIM [Concomitant]
     Route: 065

REACTIONS (1)
  - PNEUMATOSIS CYSTOIDES INTESTINALIS [None]
